FAERS Safety Report 17264071 (Version 1)
Quarter: 2020Q1

REPORT INFORMATION
  Report Type: Spontaneous
  Country: IT (occurrence: IT)
  Receive Date: 20200113
  Receipt Date: 20200113
  Transmission Date: 20200409
  Serious: Yes (Death, Hospitalization, Other)
  Sender: FDA-Public Use
  Company Number: IT-MYLANLABS-2020M1004651

PATIENT
  Age: 16 Year
  Sex: Male

DRUGS (2)
  1. DELTACORTENE [Suspect]
     Active Substance: PREDNISONE
     Indication: CHRONIC MYELOID LEUKAEMIA
     Dosage: UNK
  2. MYCOPHENOLATE MOFETIL. [Suspect]
     Active Substance: MYCOPHENOLATE MOFETIL
     Indication: CHRONIC MYELOID LEUKAEMIA
     Dosage: UNK

REACTIONS (3)
  - Cytomegalovirus viraemia [Not Recovered/Not Resolved]
  - Aspergillus infection [Fatal]
  - Neutropenia [Not Recovered/Not Resolved]
